FAERS Safety Report 4650483-7 (Version None)
Quarter: 2005Q2

REPORT INFORMATION
  Report Type: 
  Country: None (occurrence: None)
  Receive Date: 20050429
  Receipt Date: 20050426
  Transmission Date: 20051028
  Serious: Yes (Hospitalization, Other)
  Sender: FDA-Public Use
  Company Number: MED000122

PATIENT
  Age: 61 Year
  Sex: Male
  Weight: 51 kg

DRUGS (1)
  1. 3% SORBITOL IRRIGATION SOLUTION IN PLASTIC CONTAINER (PL 146) (SORBITO [Suspect]
     Indication: TRANSURETHRAL PROSTATECTOMY
     Dosage: 60 L

REACTIONS (11)
  - BLOOD PRESSURE DIASTOLIC DECREASED [None]
  - CARDIOMEGALY [None]
  - DEPRESSED LEVEL OF CONSCIOUSNESS [None]
  - HAEMOGLOBIN DECREASED [None]
  - HEART RATE DECREASED [None]
  - HYPONATRAEMIA [None]
  - HYPOXIA [None]
  - NODAL RHYTHM [None]
  - OPERATIVE HAEMORRHAGE [None]
  - POST PROCEDURAL COMPLICATION [None]
  - PULMONARY OEDEMA [None]
